FAERS Safety Report 6195846-6 (Version None)
Quarter: 2009Q2

REPORT INFORMATION
  Report Type: 
  Country: None (occurrence: None)
  Receive Date: 20090520
  Receipt Date: 20071228
  Transmission Date: 20091009
  Serious: Yes (Hospitalization, Other)
  Sender: FDA-Public Use
  Company Number: US-ASTRAZENECA-2007UW02070

PATIENT
  Age: 561 Month
  Sex: Female
  Weight: 81.2 kg

DRUGS (14)
  1. SEROQUEL [Suspect]
     Indication: DEPRESSION
     Route: 048
     Dates: start: 19991201
  2. SEROQUEL [Suspect]
     Indication: INSOMNIA
     Route: 048
     Dates: start: 19991201
  3. SEROQUEL [Suspect]
     Dosage: 100-200 MG
     Route: 048
     Dates: start: 20000209
  4. SEROQUEL [Suspect]
     Dosage: 100-200 MG
     Route: 048
     Dates: start: 20000209
  5. GEODON [Concomitant]
     Dates: start: 20010710, end: 20010718
  6. LISINOPRIL [Concomitant]
     Route: 048
  7. GLUCOPHAGE [Concomitant]
     Route: 048
  8. GLIPIZIDE [Concomitant]
     Route: 048
  9. PERSANTINE [Concomitant]
     Route: 048
  10. ZANAFLEX [Concomitant]
     Route: 048
  11. XANAX [Concomitant]
     Route: 048
  12. LORTAB [Concomitant]
     Route: 048
  13. MAGNESIUM CITRATE [Concomitant]
     Route: 048
  14. IBUPROFEN [Concomitant]
     Route: 048

REACTIONS (10)
  - ABDOMINAL PAIN [None]
  - AORTIC ARTERIOSCLEROSIS [None]
  - BLOOD CHOLESTEROL INCREASED [None]
  - DYSPNOEA [None]
  - GASTROENTERITIS [None]
  - GASTROINTESTINAL HAEMORRHAGE [None]
  - OBESITY [None]
  - RHEUMATOID ARTHRITIS [None]
  - TYPE 2 DIABETES MELLITUS [None]
  - URINARY TRACT INFECTION [None]
